FAERS Safety Report 5333719-9 (Version None)
Quarter: 2007Q2

REPORT INFORMATION
  Report Type: 
  Country: None (occurrence: None)
  Receive Date: 20070524
  Receipt Date: 20070523
  Transmission Date: 20071010
  Serious: Yes (Hospitalization)
  Sender: FDA-Public Use
  Company Number: B0472037A

PATIENT
  Age: 6 Year
  Sex: Female
  Weight: 23 kg

DRUGS (1)
  1. ZOVIRAX [Suspect]
     Indication: ENCEPHALITIS VIRAL
     Dosage: 450MG THREE TIMES PER DAY
     Route: 042
     Dates: start: 20070516

REACTIONS (3)
  - EXTRAVASATION [None]
  - SKIN NECROSIS [None]
  - WRONG TECHNIQUE IN DRUG USAGE PROCESS [None]
